FAERS Safety Report 4867078-2 (Version None)
Quarter: 2005Q4

REPORT INFORMATION
  Report Type: 
  Country: None (occurrence: None)
  Receive Date: 20051222
  Receipt Date: 20051209
  Transmission Date: 20060501
  Serious: Yes (Other)
  Sender: FDA-Public Use
  Company Number: DSA_27538_2005

PATIENT
  Sex: Female

DRUGS (1)
  1. TEMESTA [Suspect]
     Dosage: 0.5 MG Q DAY PO
     Route: 048

REACTIONS (2)
  - BRADYPHRENIA [None]
  - DRUG DEPENDENCE [None]
